FAERS Safety Report 22391323 (Version 1)
Quarter: 2023Q2

REPORT INFORMATION
  Report Type: Report from Study
  Country: MX (occurrence: MX)
  Receive Date: 20230601
  Receipt Date: 20230601
  Transmission Date: 20230721
  Serious: Yes (Other)
  Sender: FDA-Public Use
  Company Number: MX-AMGEN-MEXSL2023092601

PATIENT
  Age: 83 Year
  Sex: Female
  Weight: 50 kg

DRUGS (2)
  1. PROLIA [Suspect]
     Active Substance: DENOSUMAB
     Indication: Osteoporosis
     Dosage: 60 MILLIGRAM/1ML, Q6MO
     Route: 058
     Dates: start: 20210817
  2. PROLIA [Suspect]
     Active Substance: DENOSUMAB
     Dosage: 60 MILLIGRAM/1ML, Q6MO
     Route: 058
     Dates: start: 202304

REACTIONS (2)
  - Dental fistula [Unknown]
  - Tooth infection [Unknown]

NARRATIVE: CASE EVENT DATE: 20211101
